FAERS Safety Report 9418324 (Version 1)
Quarter: 2013Q3

REPORT INFORMATION
  Report Type: Report from Study
  Country: BR (occurrence: BR)
  Receive Date: 20130725
  Receipt Date: 20130725
  Transmission Date: 20140515
  Serious: Yes (Death, Hospitalization, Other)
  Sender: FDA-Public Use
  Company Number: BR-AMGEN-BRACT2013050937

PATIENT
  Age: 67 Year
  Sex: Female
  Weight: 66 kg

DRUGS (4)
  1. ETANERCEPT [Suspect]
     Indication: RHEUMATOID ARTHRITIS
     Dosage: 50 MG, QWK
     Route: 058
     Dates: start: 20090924
  2. ETANERCEPT [Suspect]
     Indication: PSORIATIC ARTHROPATHY
     Dosage: 50 MG, QWK
     Route: 065
  3. METHOTREXATE [Concomitant]
     Dosage: 6 MG, ONCE WEEKLY
  4. FOLIC ACID [Concomitant]
     Dosage: 5 MG, ONCE WEEKLY

REACTIONS (7)
  - Local swelling [Unknown]
  - Malaise [Not Recovered/Not Resolved]
  - Pulmonary embolism [Fatal]
  - Trigger finger [Not Recovered/Not Resolved]
  - Spinal pain [Not Recovered/Not Resolved]
  - Joint swelling [Not Recovered/Not Resolved]
  - Rebound psoriasis [Not Recovered/Not Resolved]
